FAERS Safety Report 12539170 (Version 2)
Quarter: 2016Q3

REPORT INFORMATION
  Report Type: Spontaneous
  Country: JP (occurrence: JP)
  Receive Date: 20160708
  Receipt Date: 20160722
  Transmission Date: 20161109
  Serious: Yes (Hospitalization)
  Sender: FDA-Public Use
  Company Number: JP-009507513-1606JPN010157

PATIENT
  Age: 99 Year
  Sex: Female

DRUGS (15)
  1. BELSOMRA [Suspect]
     Active Substance: SUVOREXANT
     Indication: INSOMNIA
     Dosage: 15 MG, QD
     Route: 048
     Dates: start: 20160602, end: 20160605
  2. BFLUID [Suspect]
     Active Substance: AMINO ACIDS\DEXTROSE\ELECTROLYTES NOS\VITAMINS
     Dosage: 500 ML, QD
     Route: 041
     Dates: start: 20160615, end: 20160630
  3. ASPARA K [Suspect]
     Active Substance: POTASSIUM ASPARTATE
     Indication: HYPOKALAEMIA
     Dosage: 2 G, TID
     Route: 048
     Dates: end: 20160605
  4. LENDORMIN [Concomitant]
     Active Substance: BROTIZOLAM
     Dosage: 0.25 MG, DIVIDED DOSE FREQUENCY UNKNOWN
     Route: 048
     Dates: end: 20160525
  5. ZAFATEK [Suspect]
     Active Substance: TRELAGLIPTIN SUCCINATE
     Indication: DIABETES MELLITUS
     Dosage: 50 MG, QW
     Route: 048
     Dates: end: 20160605
  6. BFLUID [Suspect]
     Active Substance: AMINO ACIDS\DEXTROSE\ELECTROLYTES NOS\VITAMINS
     Indication: DECREASED APPETITE
     Dosage: 500 ML, QD
     Route: 041
     Dates: start: 20160521, end: 20160605
  7. ASCORBIC ACID. [Concomitant]
     Active Substance: ASCORBIC ACID
     Dosage: DAILY DOSE UNKNOWN
     Route: 051
  8. BELSOMRA [Suspect]
     Active Substance: SUVOREXANT
     Indication: RESTLESSNESS
  9. AMLODIN OD [Suspect]
     Active Substance: AMLODIPINE BESYLATE
     Indication: HYPERTENSION
     Dosage: 5 MG, QD
     Route: 048
     Dates: end: 20160605
  10. AMLODIN OD [Suspect]
     Active Substance: AMLODIPINE BESYLATE
     Dosage: 5 MG, QD
     Route: 048
     Dates: start: 20160615
  11. ASPARA K [Suspect]
     Active Substance: POTASSIUM ASPARTATE
     Dosage: 2 G, TID
     Route: 048
     Dates: start: 20160615
  12. BENZALIN [Concomitant]
     Active Substance: NITRAZEPAM
     Dosage: 2.5 MG, DIVIDED DOSE FREQUENCY UNKNOWN
     Route: 048
     Dates: start: 20160524, end: 20160602
  13. ROCEPHIN [Suspect]
     Active Substance: CEFTRIAXONE SODIUM
     Indication: INFECTION
     Dosage: 1 G, BID
     Route: 041
     Dates: start: 20160521, end: 20160528
  14. ZAFATEK [Suspect]
     Active Substance: TRELAGLIPTIN SUCCINATE
     Dosage: 50 MG, QW
     Route: 048
     Dates: start: 20160615
  15. NYROZIN [Concomitant]
     Dosage: DAILY DOSE UNKNOWN
     Route: 051

REACTIONS (1)
  - Hepatic function abnormal [Recovered/Resolved]

NARRATIVE: CASE EVENT DATE: 20160606
